FAERS Safety Report 4591738-4 (Version None)
Quarter: 2005Q1

REPORT INFORMATION
  Report Type: 
  Country: None (occurrence: None)
  Receive Date: 20050223
  Receipt Date: 20050223
  Transmission Date: 20050727
  Serious: Yes (Other)
  Sender: FDA-Public Use
  Company Number: None

PATIENT
  Age: 37 Year
  Sex: Male
  Weight: 60.782 kg

DRUGS (1)
  1. BUSPIRONE 10 MG [Suspect]
     Indication: AGGRESSION
     Dosage: 10 MG ONE TID
     Dates: start: 20041101, end: 20050131

REACTIONS (4)
  - ABNORMAL BEHAVIOUR [None]
  - AGGRESSION [None]
  - AGITATION [None]
  - CONDITION AGGRAVATED [None]
